FAERS Safety Report 5073182-9 (Version None)
Quarter: 2006Q3

REPORT INFORMATION
  Report Type: 
  Country: None (occurrence: None)
  Receive Date: 20060808
  Receipt Date: 20060728
  Transmission Date: 20061208
  Serious: Yes (Hospitalization)
  Sender: FDA-Public Use
  Company Number: FR-SOLVAY-00206002440

PATIENT
  Age: 60 Year
  Sex: Female

DRUGS (10)
  1. UTROGESTAN [Suspect]
     Indication: MENOPAUSAL SYMPTOMS
     Dosage: DAILY DOSE:  UNKNOWN
     Route: 048
  2. OMEPRAZOLE [Concomitant]
     Indication: ILL-DEFINED DISORDER
     Dosage: DAILY DOSE: 20 MILLIGRAM(S)
     Route: 065
     Dates: start: 20050401
  3. NEXIUM [Concomitant]
     Indication: ILL-DEFINED DISORDER
     Dosage: DAILY DOSE:  UNKNOWN
     Route: 048
  4. FELDENE [Suspect]
     Indication: ILL-DEFINED DISORDER
     Dosage: DAILY DOSE:  UNKNOWN
     Route: 048
     Dates: start: 20041115, end: 20060319
  5. DUPHALAC [Concomitant]
     Indication: ILL-DEFINED DISORDER
     Dosage: DAILY DOSE:  UNKNOWN
     Route: 065
     Dates: start: 20050101
  6. ISOPTINE L [Suspect]
     Indication: HYPERTENSION
     Dosage: DAILY DOSE:  UNKNOWN
     Route: 065
  7. PROZAC [Concomitant]
     Indication: ILL-DEFINED DISORDER
     Dosage: DAILY DOSE:  UNKNOWN
     Route: 048
  8. VASTEN [Suspect]
     Indication: HYPERCHOLESTEROLAEMIA
     Dosage: DAILY DOSE:  UNKNOWN
     Route: 048
  9. SYMBICORT [Concomitant]
     Indication: ILL-DEFINED DISORDER
     Dosage: DAILY DOSE:  UNKNOWN
     Route: 048
  10. ESTREVA [Concomitant]
     Indication: ILL-DEFINED DISORDER
     Dosage: DAILY DOSE:  UNKNOWN
     Route: 062

REACTIONS (2)
  - COLITIS [None]
  - FOOD POISONING [None]
